FAERS Safety Report 4845250-5 (Version None)
Quarter: 2005Q4

REPORT INFORMATION
  Report Type: 
  Country: None (occurrence: None)
  Receive Date: 20051125
  Receipt Date: 20051114
  Transmission Date: 20060501
  Serious: Yes (Other)
  Sender: FDA-Public Use
  Company Number: 2005089289

PATIENT
  Sex: Female

DRUGS (6)
  1. DETROL LA [Suspect]
     Indication: HYPERTONIC BLADDER
     Dates: start: 20040408
  2. EFFEXOR [Suspect]
     Indication: ILL-DEFINED DISORDER
     Dosage: ORAL
     Route: 048
  3. LOPRESSOR [Suspect]
     Indication: ILL-DEFINED DISORDER
     Dosage: ORAL
     Route: 048
  4. HYDROCORTISONE [Concomitant]
  5. VITAMIN E [Concomitant]
  6. HYDROCODONE BITARTRATE [Concomitant]

REACTIONS (6)
  - DRUG INEFFECTIVE [None]
  - ENURESIS [None]
  - PAIN [None]
  - PRURITUS [None]
  - SURGERY [None]
  - THERAPEUTIC RESPONSE DECREASED [None]
